FAERS Safety Report 5347516-1 (Version None)
Quarter: 2007Q2

REPORT INFORMATION
  Report Type: 
  Country: None (occurrence: None)
  Receive Date: 20070606
  Receipt Date: 20070525
  Transmission Date: 20071010
  Serious: Yes (Hospitalization)
  Sender: FDA-Public Use
  Company Number: GB-NOVOPROD-263983

PATIENT

DRUGS (1)
  1. NOVORAPID FLEXPEN [Suspect]
     Indication: DIABETES MELLITUS

REACTIONS (2)
  - DEVICE FAILURE [None]
  - HOSPITALISATION [None]
